FAERS Safety Report 7626670-2 (Version None)
Quarter: 2011Q3

REPORT INFORMATION
  Report Type: 
  Country: None (occurrence: None)
  Receive Date: 20110721
  Receipt Date: 20110613
  Transmission Date: 20111222
  Serious: No
  Sender: FDA-Public Use
  Company Number: US-NOVEN-11US002618

PATIENT
  Sex: Male

DRUGS (2)
  1. FENTANYL [Suspect]
     Indication: PAIN
     Dosage: 100 UG, Q48H
     Route: 062
     Dates: start: 20110101, end: 20110613
  2. FENTANYL [Concomitant]
     Dosage: UNK
     Dates: start: 20110615

REACTIONS (7)
  - PRODUCT QUALITY ISSUE [None]
  - WITHDRAWAL SYNDROME [None]
  - HEADACHE [None]
  - ABDOMINAL PAIN UPPER [None]
  - BACK PAIN [None]
  - INADEQUATE ANALGESIA [None]
  - RETCHING [None]
